FAERS Safety Report 6394174-3 (Version None)
Quarter: 2009Q4

REPORT INFORMATION
  Report Type: 
  Country: None (occurrence: None)
  Receive Date: 20091008
  Receipt Date: 20091001
  Transmission Date: 20100525
  Serious: Yes (Death, Hospitalization, Other)
  Sender: FDA-Public Use
  Company Number: CA-ABBOTT-07P-028-0431674-00

PATIENT
  Sex: Male

DRUGS (13)
  1. LUPRON DEPOT [Suspect]
     Indication: PROSTATE CANCER
     Route: 030
     Dates: start: 20050914
  2. LANOXIN [Concomitant]
     Indication: DRUG USE FOR UNKNOWN INDICATION
     Route: 048
  3. DIOVAN [Concomitant]
     Indication: DRUG USE FOR UNKNOWN INDICATION
     Route: 048
  4. METOPROLOL SUCCINATE [Concomitant]
     Indication: DRUG USE FOR UNKNOWN INDICATION
     Dosage: 1/2 TAB
     Route: 048
  5. LIPITOR [Concomitant]
     Indication: DRUG USE FOR UNKNOWN INDICATION
     Route: 048
  6. NORVASC [Concomitant]
     Indication: DRUG USE FOR UNKNOWN INDICATION
     Dosage: QAM
     Route: 048
  7. TERAZOSIN HCL [Concomitant]
     Indication: DRUG USE FOR UNKNOWN INDICATION
     Route: 048
  8. PARIET [Concomitant]
     Indication: DRUG USE FOR UNKNOWN INDICATION
     Route: 048
  9. SPIRIVA [Concomitant]
     Indication: DRUG USE FOR UNKNOWN INDICATION
     Route: 055
  10. VENTOLIN [Concomitant]
     Indication: DRUG USE FOR UNKNOWN INDICATION
     Dosage: 1 PUFF BID/TID
     Route: 055
  11. FENTANYL-100 [Concomitant]
     Indication: PAIN
     Dosage: PATCH, EVERY 3 DAYS
  12. HUMALOG [Concomitant]
     Indication: DRUG USE FOR UNKNOWN INDICATION
     Dosage: 10 UNIT EVERY AM, 8 UNITS AT NOON AND 15 UNITS IN LATE AFTERNOON
  13. HUMULIN N [Concomitant]
     Indication: DRUG USE FOR UNKNOWN INDICATION
     Dosage: 7 UNITS EVERY HS

REACTIONS (23)
  - ANORECTAL DISCOMFORT [None]
  - BLOOD GLUCOSE FLUCTUATION [None]
  - BLOODY DISCHARGE [None]
  - CEREBRAL HAEMORRHAGE [None]
  - CEREBROVASCULAR ACCIDENT [None]
  - CONSTIPATION [None]
  - DECUBITUS ULCER [None]
  - DIARRHOEA [None]
  - IMPAIRED HEALING [None]
  - INCISION SITE INFECTION [None]
  - MUSCULAR WEAKNESS [None]
  - OPEN WOUND [None]
  - PAIN [None]
  - PAIN IN EXTREMITY [None]
  - PERIPHERAL EMBOLISM [None]
  - POOR PERIPHERAL CIRCULATION [None]
  - PURULENT DISCHARGE [None]
  - SKIN DISCOLOURATION [None]
  - SKIN ULCER [None]
  - THROMBOSIS [None]
  - WOUND DRAINAGE [None]
  - WOUND INFECTION [None]
  - WOUND SECRETION [None]
